FAERS Safety Report 7931075-0 (Version None)
Quarter: 2011Q4

REPORT INFORMATION
  Report Type: 
  Country: None (occurrence: None)
  Receive Date: 20111118
  Receipt Date: 20111118
  Transmission Date: 20120403
  Serious: Yes (Life-Threatening, Hospitalization)
  Sender: FDA-Public Use
  Company Number: None

PATIENT
  Sex: Female
  Weight: 75.7507 kg

DRUGS (2)
  1. EXALGO [Suspect]
     Indication: PAIN MANAGEMENT
     Dosage: EXALGO / ER 8 MG A DAY ORAL
     Route: 048
     Dates: start: 20110828, end: 20110830
  2. EXALGO [Suspect]
     Indication: PAIN MANAGEMENT
     Dosage: EXALGO / ER 8 MG A DAY ORAL
     Route: 048
     Dates: start: 20110831, end: 20110903

REACTIONS (3)
  - NAUSEA [None]
  - PRODUCT SOLUBILITY ABNORMAL [None]
  - HAEMATEMESIS [None]
